FAERS Safety Report 25918020 (Version 1)
Quarter: 2025Q4

REPORT INFORMATION
  Report Type: Spontaneous
  Country: EU (occurrence: EU)
  Receive Date: 20251014
  Receipt Date: 20251014
  Transmission Date: 20260117
  Serious: Yes (Other)
  Sender: AUROBINDO
  Company Number: EU-AEMPS-1758963

PATIENT
  Age: 78 Year
  Sex: Female

DRUGS (4)
  1. ACETAMINOPHEN [Suspect]
     Active Substance: ACETAMINOPHEN
     Indication: Abdominal pain
     Dosage: 650 MILLIGRAM, 8 HOURS
     Route: 048
     Dates: start: 20250321, end: 20250328
  2. ZALDIAR [Suspect]
     Active Substance: ACETAMINOPHEN\TRAMADOL HYDROCHLORIDE
     Indication: Back pain
     Dosage: 1 DOSAGE FORM, 8 HOURS (1 CP CADA 8 HRS)
     Route: 048
     Dates: start: 20250320
  3. ROBAXIN [Suspect]
     Active Substance: METHOCARBAMOL
     Indication: Back pain
     Dosage: 500 MILLIGRAM, ONCE A DAY (1 CP CADA 12 HRS)
     Route: 048
     Dates: start: 20250320
  4. METAMIZOL [Concomitant]
     Active Substance: METAMIZOLE SODIUM
     Indication: Abdominal pain
     Dosage: 575 MILLIGRAM, AS NECESSARY
     Route: 048
     Dates: start: 20250321, end: 20250328

REACTIONS (1)
  - Hepatic cytolysis [Recovered/Resolved]

NARRATIVE: CASE EVENT DATE: 20250327
